FAERS Safety Report 8454651-8 (Version None)
Quarter: 2012Q2

REPORT INFORMATION
  Report Type: 
  Country: None (occurrence: None)
  Receive Date: 20120621
  Receipt Date: 20090529
  Transmission Date: 20120825
  Serious: Yes (Hospitalization)
  Sender: FDA-Public Use
  Company Number: JP-BRISTOL-MYERS SQUIBB COMPANY-16696601

PATIENT
  Age: 74 Year
  Sex: Female
  Weight: 46 kg

DRUGS (9)
  1. ERBITUX [Suspect]
     Indication: RECTAL CANCER
     Dosage: THERAPY DATES: 10-10MAR09,17MAR-26MAY09
     Route: 041
     Dates: start: 20090310, end: 20090526
  2. DEXAMETHASONE SODIUM PHOSPHATE [Concomitant]
     Indication: PREMEDICATION
     Route: 042
     Dates: start: 20090310
  3. CLONAZEPAM [Concomitant]
     Indication: NEURALGIA
     Route: 048
     Dates: start: 20090210, end: 20090408
  4. CHLOR-TRIMETON [Concomitant]
     Indication: PREMEDICATION
     Dosage: INTRAVENOUS INFUSION
     Route: 042
     Dates: start: 20090310
  5. NAPROXEN [Concomitant]
     Indication: CANCER PAIN
     Dosage: TABLET
     Route: 048
     Dates: start: 20070608
  6. FERROUS CITRATE [Concomitant]
     Indication: IRON DEFICIENCY ANAEMIA
     Route: 048
     Dates: start: 20090210
  7. OXYCONTIN [Suspect]
     Indication: CANCER PAIN
     Dosage: TABLET
     Route: 048
     Dates: start: 20071112
  8. LANSOPRAZOLE [Concomitant]
     Indication: PROPHYLAXIS
     Route: 048
     Dates: start: 20090401
  9. PROMACTA [Concomitant]
     Indication: PROPHYLAXIS
     Route: 048
     Dates: start: 20090414

REACTIONS (10)
  - PARONYCHIA [None]
  - CONSTIPATION [None]
  - LACERATION [None]
  - DRY SKIN [None]
  - NEUTROPENIC INFECTION [None]
  - HYPOPHOSPHATAEMIA [None]
  - HYPONATRAEMIA [None]
  - HYPOKALAEMIA [None]
  - DYSGEUSIA [None]
  - ACNE [None]
